FAERS Safety Report 9473479 (Version 1)
Quarter: 2013Q3

REPORT INFORMATION
  Report Type: Spontaneous
  Country: US (occurrence: US)
  Receive Date: 20130823
  Receipt Date: 20130823
  Transmission Date: 20140515
  Serious: No
  Sender: FDA-Public Use
  Company Number: US-BRISTOL-MYERS SQUIBB COMPANY-19026384

PATIENT
  Age: 45 Year
  Sex: Female

DRUGS (1)
  1. SPRYCEL (CML) TABS 70 MG [Suspect]
     Indication: CHRONIC MYELOID LEUKAEMIA
     Route: 048
     Dates: start: 201305

REACTIONS (3)
  - Chest pain [Unknown]
  - Constipation [Unknown]
  - Headache [Unknown]
